FAERS Safety Report 20902526 (Version 7)
Quarter: 2022Q4

REPORT INFORMATION
  Report Type: Spontaneous
  Country: US (occurrence: US)
  Receive Date: 20220601
  Receipt Date: 20221205
  Transmission Date: 20230113
  Serious: Yes (Other)
  Sender: FDA-Public Use
  Company Number: US-PFIZER INC-202200778485

PATIENT
  Age: 57 Year
  Sex: Female

DRUGS (2)
  1. IBRANCE [Suspect]
     Active Substance: PALBOCICLIB
     Dosage: 125 MG
  2. IBRANCE [Suspect]
     Active Substance: PALBOCICLIB
     Dosage: 125 MG
     Dates: start: 20220520, end: 2022

REACTIONS (9)
  - Pulmonary congestion [Not Recovered/Not Resolved]
  - Neoplasm progression [Unknown]
  - Off label use [Unknown]
  - Fatigue [Unknown]
  - White blood cell count decreased [Unknown]
  - Cough [Recovering/Resolving]
  - Productive cough [Not Recovered/Not Resolved]
  - Night sweats [Unknown]
  - Pyrexia [Unknown]

NARRATIVE: CASE EVENT DATE: 20220629
